FAERS Safety Report 8740347 (Version 2)
Quarter: 2013Q4

REPORT INFORMATION
  Report Type: Spontaneous
  Country: US (occurrence: US)
  Receive Date: 20120823
  Receipt Date: 20131101
  Transmission Date: 20140711
  Serious: No
  Sender: FDA-Public Use
  Company Number: US-009507513-1208USA004119

PATIENT
  Age: 38 Year
  Sex: Male

DRUGS (4)
  1. DIPROLENE AF [Suspect]
     Indication: PSORIASIS
     Dosage: UNK, PRN
     Route: 003
     Dates: start: 198208
  2. DIPROLENE [Suspect]
     Indication: PSORIASIS
     Dosage: UNK
     Route: 003
     Dates: start: 198208
  3. EFFEXOR [Concomitant]
  4. OMPERAZOL DURA [Concomitant]

REACTIONS (3)
  - Adrenal cyst [Unknown]
  - Borderline mental impairment [Unknown]
  - Drug administered to patient of inappropriate age [Unknown]
